FAERS Safety Report 4393058-X (Version None)
Quarter: 2004Q3

REPORT INFORMATION
  Report Type: 
  Country: None (occurrence: None)
  Receive Date: 20040708
  Receipt Date: 20040628
  Transmission Date: 20050211
  Serious: Yes (Hospitalization)
  Sender: FDA-Public Use
  Company Number: PHEH2004US06957

PATIENT
  Age: 73 Year
  Sex: Female

DRUGS (7)
  1. DIOVAN [Suspect]
     Dosage: 160 MG, QD
     Route: 048
  2. COREG [Suspect]
  3. NORVASC [Concomitant]
  4. ZOCOR [Concomitant]
  5. MULTIVITAMIN [Concomitant]
  6. ASPIRIN [Concomitant]
  7. PLAVIX [Concomitant]

REACTIONS (4)
  - ASTHENIA [None]
  - DIZZINESS [None]
  - SYNCOPE [None]
  - TREMOR [None]
